FAERS Safety Report 14081203 (Version 1)
Quarter: 2017Q4

REPORT INFORMATION
  Report Type: Spontaneous
  Country: US (occurrence: US)
  Receive Date: 20171013
  Receipt Date: 20171013
  Transmission Date: 20180321
  Serious: No
  Sender: FDA-Public Use
  Company Number: None

PATIENT
  Age: 48 Year
  Sex: Female
  Weight: 58.5 kg

DRUGS (3)
  1. FLUOXETINE HYDROCHLORIDE 40 MG [Suspect]
     Active Substance: FLUOXETINE HYDROCHLORIDE
     Indication: DEPRESSION
     Dosage: ?          QUANTITY:1 CAPSULE(S);?
     Route: 048
     Dates: start: 20170730, end: 20171012
  2. FLUOXETINE HYDROCHLORIDE 40 MG [Suspect]
     Active Substance: FLUOXETINE HYDROCHLORIDE
     Indication: ANXIETY
     Dosage: ?          QUANTITY:1 CAPSULE(S);?
     Route: 048
     Dates: start: 20170730, end: 20171012
  3. ALPRAZOLAM. [Concomitant]
     Active Substance: ALPRAZOLAM

REACTIONS (7)
  - Dyspepsia [None]
  - Pain [None]
  - Feeling abnormal [None]
  - Abdominal distension [None]
  - Eructation [None]
  - Tinnitus [None]
  - Insomnia [None]

NARRATIVE: CASE EVENT DATE: 20171012
